FAERS Safety Report 6570198-8 (Version None)
Quarter: 2010Q1

REPORT INFORMATION
  Report Type: 
  Country: None (occurrence: None)
  Receive Date: 20100202
  Receipt Date: 20100202
  Transmission Date: 20100710
  Serious: Yes (Hospitalization)
  Sender: FDA-Public Use
  Company Number: None

PATIENT
  Sex: Female
  Weight: 67.1324 kg

DRUGS (5)
  1. ABILIFY [Suspect]
     Indication: ANTIDEPRESSANT THERAPY
     Dosage: 1 TABLET AT BEDTIME PO
     Route: 048
     Dates: start: 20091230, end: 20091231
  2. VICODINE [Concomitant]
  3. MORPHINE [Concomitant]
  4. DILAUDID [Concomitant]
  5. LYRICA [Concomitant]

REACTIONS (6)
  - BLOOD PRESSURE INCREASED [None]
  - CONFUSIONAL STATE [None]
  - FALL [None]
  - PAIN IN EXTREMITY [None]
  - PYREXIA [None]
  - VISION BLURRED [None]
